FAERS Safety Report 5935433-5 (Version None)
Quarter: 2008Q4

REPORT INFORMATION
  Report Type: 
  Country: None (occurrence: None)
  Receive Date: 20081030
  Receipt Date: 20081023
  Transmission Date: 20090506
  Serious: Yes (Other)
  Sender: FDA-Public Use
  Company Number: US-AMGEN-QUU306167

PATIENT
  Sex: Female

DRUGS (1)
  1. ENBREL [Suspect]
     Indication: PSORIATIC ARTHROPATHY
     Route: 058
     Dates: start: 20040326, end: 20070401

REACTIONS (4)
  - GLOSSODYNIA [None]
  - PRE-ECLAMPSIA [None]
  - PREMATURE LABOUR [None]
  - TONGUE DISORDER [None]
